FAERS Safety Report 7153501-X (Version None)
Quarter: 2010Q4

REPORT INFORMATION
  Report Type: 
  Country: None (occurrence: None)
  Receive Date: 20101213
  Receipt Date: 20101207
  Transmission Date: 20110411
  Serious: Yes (Hospitalization)
  Sender: FDA-Public Use
  Company Number: B0687768A

PATIENT
  Sex: Female

DRUGS (4)
  1. REQUIP [Suspect]
     Indication: PARKINSON'S DISEASE
     Dosage: 16MG PER DAY
     Route: 048
     Dates: start: 20080701, end: 20100701
  2. MODOPAR [Concomitant]
     Dosage: 3UNIT PER DAY
     Route: 065
  3. LIVIAL [Concomitant]
     Dosage: 1UNIT PER DAY
     Route: 065
  4. XYZAL [Concomitant]
     Dosage: 1UNIT PER DAY
     Route: 065

REACTIONS (10)
  - ABNORMAL BEHAVIOUR [None]
  - AGGRESSION [None]
  - DELIRIUM [None]
  - DEPRESSED MOOD [None]
  - HALLUCINATION [None]
  - HALLUCINATION, AUDITORY [None]
  - HALLUCINATION, VISUAL [None]
  - INSOMNIA [None]
  - PERSECUTORY DELUSION [None]
  - SPEECH DISORDER [None]
